FAERS Safety Report 10034766 (Version 2)
Quarter: 2014Q2

REPORT INFORMATION
  Report Type: Report from Study
  Country: US (occurrence: US)
  Receive Date: 20140325
  Receipt Date: 20140624
  Transmission Date: 20141212
  Serious: Yes (Hospitalization)
  Sender: FDA-Public Use
  Company Number: US-SA-2014SA033978

PATIENT
  Age: 78 Year
  Sex: Female
  Weight: 79.3 kg

DRUGS (8)
  1. CLOPIDOGREL BISULFATE [Suspect]
     Indication: CORONARY ARTERY DISEASE
     Dosage: LOADING DOSE
     Route: 048
     Dates: start: 20100907, end: 20100907
  2. CLOPIDOGREL BISULFATE [Suspect]
     Indication: CORONARY ARTERY DISEASE
     Dosage: MAINTAINENCE DOSE
     Route: 048
     Dates: start: 20100908
  3. DRUG ELUTING STENT [Suspect]
     Indication: CORONARY ARTERY DISEASE
     Route: 065
     Dates: start: 20100907
  4. ASPIRIN [Suspect]
     Indication: CORONARY ARTERY DISEASE
     Route: 048
     Dates: start: 20100907
  5. ZOCOR [Concomitant]
     Indication: DYSLIPIDAEMIA
  6. LISINOPRIL [Concomitant]
     Indication: HYPERTENSION
  7. DRUG ELUTING STENT [Concomitant]
     Dates: start: 20100907
  8. ALL OTHER THERAPEUTIC PRODUCTS [Concomitant]
     Dates: start: 20100907

REACTIONS (1)
  - Dyspnoea exertional [Recovered/Resolved]
